FAERS Safety Report 7763211-3 (Version None)
Quarter: 2011Q3

REPORT INFORMATION
  Report Type: 
  Country: None (occurrence: None)
  Receive Date: 20110920
  Receipt Date: 20110914
  Transmission Date: 20111222
  Serious: Yes (Other)
  Sender: FDA-Public Use
  Company Number: PHEH2011US04243

PATIENT
  Sex: Female

DRUGS (10)
  1. RECLAST [Suspect]
     Dosage: UNK
     Route: 042
     Dates: start: 20110512
  2. VALIUM [Concomitant]
  3. POTASSIUM [Concomitant]
  4. LOSARTAN POTASSIUM [Concomitant]
  5. LOVAZA [Concomitant]
  6. ASPIRIN [Concomitant]
  7. CALTRATE + D [Concomitant]
  8. NEXIUM [Concomitant]
  9. ZOCOR [Concomitant]
  10. VITAMIN B COMPLEX CAP [Concomitant]

REACTIONS (1)
  - BONE LOSS [None]
